FAERS Safety Report 12345493 (Version 4)
Quarter: 2017Q2

REPORT INFORMATION
  Report Type: Report from Study
  Country: JP (occurrence: JP)
  Receive Date: 20160509
  Receipt Date: 20170603
  Transmission Date: 20170830
  Serious: Yes (Hospitalization, Other)
  Sender: FDA-Public Use
  Company Number: JP-AMGEN-JPNCT2016037677

PATIENT
  Age: 70 Year
  Sex: Female
  Weight: 57 kg

DRUGS (13)
  1. ISOVORIN [Suspect]
     Active Substance: LEUCOVORIN CALCIUM
     Dosage: 290 MG, Q2WEEKS
     Route: 041
     Dates: start: 20160331, end: 20160331
  2. ISOVORIN [Suspect]
     Active Substance: LEUCOVORIN CALCIUM
     Indication: COLON CANCER
     Dosage: 290 MG, Q2WEEKS
     Route: 041
     Dates: start: 20160302, end: 20160302
  3. 5-FU [Suspect]
     Active Substance: FLUOROURACIL
     Indication: COLON CANCER
     Dosage: 580 MG, Q2WEEKS
     Route: 040
     Dates: start: 20160302, end: 20160302
  4. 5-FU [Suspect]
     Active Substance: FLUOROURACIL
     Dosage: 200 MG/M2, Q2WEEKS
     Route: 040
     Dates: start: 20160331, end: 20160331
  5. ELPLAT [Suspect]
     Active Substance: OXALIPLATIN
     Indication: COLON CANCER
     Dosage: 120 MG, Q2WEEKS
     Route: 041
     Dates: start: 20160302, end: 20160302
  6. ALOXI [Suspect]
     Active Substance: PALONOSETRON HYDROCHLORIDE
     Indication: PROPHYLAXIS OF NAUSEA AND VOMITING
     Dosage: 0.75 MG, UNK
     Route: 041
     Dates: start: 20160302, end: 20160331
  7. 5-FU [Suspect]
     Active Substance: FLUOROURACIL
     Dosage: 2000 MG/M2, Q2WK
     Route: 041
     Dates: start: 20160331, end: 20160402
  8. PANITUMUMAB [Suspect]
     Active Substance: PANITUMUMAB
     Dosage: 340 MG, Q2WEEKS
     Route: 041
     Dates: start: 20160331, end: 20160331
  9. 5-FU [Suspect]
     Active Substance: FLUOROURACIL
     Dosage: 3490 MG, Q2WEEKS
     Route: 041
     Dates: start: 20160302, end: 20160304
  10. ELPLAT [Suspect]
     Active Substance: OXALIPLATIN
     Dosage: 65 MG/M2, Q2WEEKS
     Route: 041
     Dates: start: 20160331, end: 20160331
  11. PROEMEND [Suspect]
     Active Substance: FOSAPREPITANT
     Indication: PROPHYLAXIS OF NAUSEA AND VOMITING
     Dosage: 150 MG, UNK
     Route: 041
     Dates: start: 20160302, end: 20160331
  12. DEXART [Suspect]
     Active Substance: DEXAMETHASONE SODIUM PHOSPHATE
     Indication: PROPHYLAXIS OF NAUSEA AND VOMITING
     Dosage: 6.6 MG, UNK
     Route: 041
     Dates: start: 20160302, end: 20160331
  13. PANITUMUMAB [Suspect]
     Active Substance: PANITUMUMAB
     Indication: COLON CANCER
     Dosage: 340 MG, Q2WEEKS
     Route: 041
     Dates: start: 20160302, end: 20160302

REACTIONS (7)
  - Malaise [Not Recovered/Not Resolved]
  - Condition aggravated [Recovering/Resolving]
  - Vomiting [Recovered/Resolved]
  - Nausea [Recovered/Resolved]
  - Deep vein thrombosis [Recovering/Resolving]
  - Neuropathy peripheral [Recovered/Resolved]
  - Anaemia [Not Recovered/Not Resolved]

NARRATIVE: CASE EVENT DATE: 20160303
